FAERS Safety Report 20114404 (Version 1)
Quarter: 2021Q4

REPORT INFORMATION
  Report Type: Spontaneous
  Country: US (occurrence: US)
  Receive Date: 20211125
  Receipt Date: 20211125
  Transmission Date: 20220303
  Serious: No
  Sender: FDA-Public Use
  Company Number: US-TAKEDA-2021TUS074674

PATIENT
  Sex: Female

DRUGS (1)
  1. VYVANSE [Suspect]
     Active Substance: LISDEXAMFETAMINE DIMESYLATE
     Indication: Attention deficit hyperactivity disorder
     Route: 065
     Dates: start: 20211006, end: 20211102

REACTIONS (4)
  - Tearfulness [Unknown]
  - Mood altered [Unknown]
  - Nervousness [Unknown]
  - Nausea [Unknown]
